FAERS Safety Report 9453098 (Version 1)
Quarter: 2013Q3

REPORT INFORMATION
  Report Type: Spontaneous
  Country: TW (occurrence: TW)
  Receive Date: 20130812
  Receipt Date: 20130812
  Transmission Date: 20140515
  Serious: Yes (Other)
  Sender: FDA-Public Use
  Company Number: TW-PFIZER INC-2013233357

PATIENT
  Sex: Female

DRUGS (2)
  1. LYRICA [Suspect]
     Dosage: 1 DF (1 TABLET), 2X/DAY
     Route: 048
  2. CYMBALTA [Concomitant]

REACTIONS (2)
  - Haemorrhoidal haemorrhage [Recovered/Resolved]
  - Inappropriate schedule of drug administration [Unknown]
